FAERS Safety Report 18543656 (Version 3)
Quarter: 2021Q1

REPORT INFORMATION
  Report Type: Report from Study
  Country: CN (occurrence: CN)
  Receive Date: 20201125
  Receipt Date: 20210106
  Transmission Date: 20210419
  Serious: Yes (Congenital Anomaly)
  Sender: FDA-Public Use
  Company Number: CN-GILEAD-2020-0504386

PATIENT
  Age: 40 Week
  Sex: Female
  Weight: 3.06 kg

DRUGS (1)
  1. TENOFOVIR DISOPROXIL FUMARATE. [Suspect]
     Active Substance: TENOFOVIR DISOPROXIL FUMARATE
     Indication: HEPATITIS B
     Dosage: 300 MG, QD
     Route: 064
     Dates: start: 20200611, end: 20200902

REACTIONS (2)
  - Birth mark [Unknown]
  - Foetal exposure during pregnancy [Recovered/Resolved]
